FAERS Safety Report 4892998-2 (Version None)
Quarter: 2005Q4

REPORT INFORMATION
  Report Type: 
  Country: None (occurrence: None)
  Receive Date: 20051223
  Receipt Date: 20051026
  Transmission Date: 20060501
  Serious: No
  Sender: FDA-Public Use
  Company Number: 217356

PATIENT
  Age: 57 Year
  Sex: Male

DRUGS (3)
  1. AVASTIN [Suspect]
     Indication: RECTAL CANCER
  2. FLUOROURACIL [Suspect]
     Indication: RECTAL CANCER
  3. LEUCOVORIN CALCIUM [Suspect]
     Indication: RECTAL CANCER

REACTIONS (2)
  - PAROTITIS [None]
  - SWOLLEN TONGUE [None]
